FAERS Safety Report 21865703 (Version 1)
Quarter: 2023Q1

REPORT INFORMATION
  Report Type: Spontaneous
  Country: US (occurrence: US)
  Receive Date: 20230116
  Receipt Date: 20230116
  Transmission Date: 20230417
  Serious: No
  Sender: FDA-Public Use
  Company Number: US-SA-SAC20230110001550

PATIENT
  Age: 37 Year
  Sex: Male
  Weight: 72.562 kg

DRUGS (2)
  1. DUPIXENT [Suspect]
     Active Substance: DUPILUMAB
     Indication: Dermatitis atopic
     Dosage: 300 MG, QOW
     Route: 058
  2. FINASTERIDE [Suspect]
     Active Substance: FINASTERIDE
     Dosage: UNK
     Route: 065

REACTIONS (9)
  - Paraesthesia [Recovering/Resolving]
  - Dry skin [Unknown]
  - Photophobia [Unknown]
  - Lacrimation increased [Unknown]
  - Skin warm [Recovering/Resolving]
  - Skin exfoliation [Unknown]
  - Erythema [Recovering/Resolving]
  - Contraindicated product prescribed [Unknown]
  - Contraindicated product administered [Unknown]

NARRATIVE: CASE EVENT DATE: 20220101
